FAERS Safety Report 7158485-6 (Version None)
Quarter: 2010Q4

REPORT INFORMATION
  Report Type: 
  Country: None (occurrence: None)
  Receive Date: 20101129
  Receipt Date: 20101109
  Transmission Date: 20110411
  Serious: Yes (Life-Threatening, Hospitalization, Disabling, Other)
  Sender: FDA-Public Use
  Company Number: 2010P1001449

PATIENT
  Age: 66 Year
  Sex: Female

DRUGS (7)
  1. CARBAMAZEPINE [Suspect]
     Indication: TRIGEMINAL NEURALGIA
     Dosage: 200 MG; QID; PO
     Route: 048
     Dates: start: 20080707, end: 20080806
  2. MIRAPEX [Concomitant]
  3. LEVOTHYROXINE [Concomitant]
  4. ETODOLAC [Concomitant]
  5. ACETAMINOPHEN AND HYDROCODONE BITARTRATE [Concomitant]
  6. LABETALOL [Concomitant]
  7. ACETAMINOPHEN [Concomitant]

REACTIONS (22)
  - ALOPECIA [None]
  - ANHEDONIA [None]
  - DIZZINESS [None]
  - EMOTIONAL DISTRESS [None]
  - HYPERSENSITIVITY [None]
  - LIVER FUNCTION TEST ABNORMAL [None]
  - MENTAL DISORDER [None]
  - MUCOUS MEMBRANE DISORDER [None]
  - MULTI-ORGAN DISORDER [None]
  - ONYCHOMADESIS [None]
  - PAIN [None]
  - PIGMENTATION DISORDER [None]
  - PRURITUS [None]
  - RASH [None]
  - SCAR [None]
  - SKIN DISCOLOURATION [None]
  - SKIN EXFOLIATION [None]
  - STEVENS-JOHNSON SYNDROME [None]
  - SWELLING [None]
  - THERMAL BURN [None]
  - URTICARIA [None]
  - VISUAL ACUITY REDUCED [None]
